FAERS Safety Report 6039509-6 (Version None)
Quarter: 2009Q1

REPORT INFORMATION
  Report Type: 
  Country: None (occurrence: None)
  Receive Date: 20090114
  Receipt Date: 20081230
  Transmission Date: 20090719
  Serious: Yes (Hospitalization)
  Sender: FDA-Public Use
  Company Number: 14434

PATIENT
  Age: 57 Year
  Sex: Male
  Weight: 90.2658 kg

DRUGS (9)
  1. MORPHINE SULFATE [Suspect]
     Indication: PAIN
     Dosage: 60 MG BID ORALLY
     Route: 048
     Dates: start: 20080321, end: 20080401
  2. CYMBALTA [Concomitant]
  3. ZIAC [Concomitant]
  4. NASONEX [Concomitant]
  5. XANAX [Concomitant]
  6. LIDODERM 5%(700 MG) [Concomitant]
  7. ASPIRIN [Concomitant]
  8. BISOPROLOL/HCTZ 5/6.25 [Concomitant]
  9. METHADONE 20MG [Concomitant]

REACTIONS (28)
  - ABDOMINAL PAIN [None]
  - ABDOMINAL PAIN UPPER [None]
  - AGITATION [None]
  - ANXIETY [None]
  - DELIRIUM [None]
  - DEPRESSION [None]
  - DIARRHOEA [None]
  - DISORIENTATION [None]
  - DRUG WITHDRAWAL SYNDROME [None]
  - DRY THROAT [None]
  - FEELING COLD [None]
  - FEELING OF DESPAIR [None]
  - FLAT AFFECT [None]
  - HALLUCINATIONS, MIXED [None]
  - HEADACHE [None]
  - HOMICIDAL IDEATION [None]
  - INSOMNIA [None]
  - MENTAL STATUS CHANGES [None]
  - MYALGIA [None]
  - NAUSEA [None]
  - NERVOUSNESS [None]
  - PRODUCT QUALITY ISSUE [None]
  - PSYCHOTIC DISORDER [None]
  - REFUSAL OF TREATMENT BY PATIENT [None]
  - STRESS [None]
  - SUICIDAL IDEATION [None]
  - THIRST [None]
  - TREMOR [None]
